FAERS Safety Report 10903017 (Version 2)
Quarter: 2015Q1

REPORT INFORMATION
  Report Type: Spontaneous
  Country: US (occurrence: US)
  Receive Date: 20150311
  Receipt Date: 20150318
  Transmission Date: 20150721
  Serious: Yes (Death, Hospitalization, Other)
  Sender: FDA-Public Use
  Company Number: US-AMGEN-USASP2015020185

PATIENT
  Sex: Male

DRUGS (1)
  1. BLINCYTO [Suspect]
     Active Substance: BLINATUMOMAB
     Indication: PRODUCT USED FOR UNKNOWN INDICATION
     Dosage: 28 MUG, QD
     Route: 042

REACTIONS (5)
  - Muscle spasms [Recovered/Resolved]
  - Depressed level of consciousness [Unknown]
  - Cytokine release syndrome [Unknown]
  - Hiccups [Unknown]
  - Death [Fatal]

NARRATIVE: CASE EVENT DATE: 20150310
